FAERS Safety Report 21904067 (Version 1)
Quarter: 2023Q1

REPORT INFORMATION
  Report Type: Spontaneous
  Country: US (occurrence: None)
  Receive Date: 20230123
  Receipt Date: 20230123
  Transmission Date: 20230418
  Serious: Yes (Hospitalization)
  Sender: FDA-Public Use
  Company Number: None

PATIENT
  Sex: Male

DRUGS (4)
  1. ESBRIET [Suspect]
     Active Substance: PIRFENIDONE
     Indication: Idiopathic pulmonary fibrosis
     Dosage: 267 MG ORAL??TAKE 3 CAPSULES BY MOUTH THREE TIMES DAILY AT THE SAME TIME EACH DAY
     Route: 048
     Dates: start: 20170110
  2. ASPIRIN LOW TAB EC [Concomitant]
  3. FLOMAX CAP [Concomitant]
  4. VITAMIN D CAP [Concomitant]

REACTIONS (1)
  - Therapy interrupted [None]
